FAERS Safety Report 21943411 (Version 2)
Quarter: 2025Q1

REPORT INFORMATION
  Report Type: Spontaneous
  Country: JP (occurrence: JP)
  Receive Date: 20230202
  Receipt Date: 20250121
  Transmission Date: 20250408
  Serious: No
  Sender: PADAGIS
  Company Number: JP-PADAGIS-2023PAD00067

PATIENT

DRUGS (23)
  1. DICLOFENAC SODIUM [Suspect]
     Active Substance: DICLOFENAC SODIUM
     Indication: Dyskinesia
     Route: 065
  2. DICLOFENAC SODIUM [Suspect]
     Active Substance: DICLOFENAC SODIUM
     Indication: Pain in extremity
  3. TRAMADOL [Suspect]
     Active Substance: TRAMADOL
     Indication: Dyskinesia
     Route: 065
  4. TRAMADOL [Suspect]
     Active Substance: TRAMADOL
     Indication: Pain in extremity
  5. VALPROIC ACID [Suspect]
     Active Substance: VALPROIC ACID
     Indication: Dyskinesia
     Route: 065
  6. VALPROIC ACID [Suspect]
     Active Substance: VALPROIC ACID
     Indication: Pain in extremity
  7. CARBAMAZEPINE [Suspect]
     Active Substance: CARBAMAZEPINE
     Indication: Dyskinesia
     Route: 065
  8. CARBAMAZEPINE [Suspect]
     Active Substance: CARBAMAZEPINE
     Indication: Pain in extremity
  9. CLONAZEPAM [Suspect]
     Active Substance: CLONAZEPAM
     Indication: Dyskinesia
     Route: 065
  10. CLONAZEPAM [Suspect]
     Active Substance: CLONAZEPAM
     Indication: Pain in extremity
  11. GABAPENTIN [Suspect]
     Active Substance: GABAPENTIN
     Indication: Dyskinesia
     Route: 065
  12. GABAPENTIN [Suspect]
     Active Substance: GABAPENTIN
     Indication: Pain in extremity
  13. PREGABALIN [Suspect]
     Active Substance: PREGABALIN
     Indication: Dyskinesia
     Route: 065
  14. PREGABALIN [Suspect]
     Active Substance: PREGABALIN
     Indication: Pain in extremity
  15. MIROGABALIN [Suspect]
     Active Substance: MIROGABALIN
     Indication: Dyskinesia
     Route: 065
  16. MIROGABALIN [Suspect]
     Active Substance: MIROGABALIN
     Indication: Pain in extremity
  17. DULOXETINE [Suspect]
     Active Substance: DULOXETINE
     Indication: Dyskinesia
     Route: 065
  18. DULOXETINE [Suspect]
     Active Substance: DULOXETINE
     Indication: Pain in extremity
  19. BOTULINUM TOXIN TYPE A [Suspect]
     Active Substance: BOTULINUM TOXIN TYPE A
     Indication: Pain in extremity
     Route: 065
  20. BOTULINUM TOXIN TYPE A [Suspect]
     Active Substance: BOTULINUM TOXIN TYPE A
     Indication: Dyskinesia
  21. L DOPA [Concomitant]
     Active Substance: LEVODOPA
     Indication: Parkinsonism
     Route: 065
  22. L DOPA [Concomitant]
     Active Substance: LEVODOPA
     Indication: Pain
  23. PRAMIPEXOLE [Concomitant]
     Active Substance: PRAMIPEXOLE
     Indication: Restless legs syndrome
     Route: 065

REACTIONS (1)
  - Drug ineffective for unapproved indication [Unknown]
